FAERS Safety Report 14436943 (Version 1)
Quarter: 2018Q1

REPORT INFORMATION
  Report Type: Report from Study
  Country: CN (occurrence: CN)
  Receive Date: 20180125
  Receipt Date: 20180125
  Transmission Date: 20180509
  Serious: Yes (Other)
  Sender: FDA-Public Use
  Company Number: CN-ACCORD-062908

PATIENT
  Age: 41 Year
  Sex: Male

DRUGS (3)
  1. CISPLATIN. [Suspect]
     Active Substance: CISPLATIN
     Indication: MYASTHENIA GRAVIS
     Dosage: ON DAY 1 ?REPEATED AT 3-WEEK INTERVAL
  2. INSULIN [Concomitant]
     Active Substance: INSULIN NOS
     Indication: TYPE 2 DIABETES MELLITUS
  3. DOCETAXEL. [Suspect]
     Active Substance: DOCETAXEL
     Indication: MYASTHENIA GRAVIS
     Dosage: ON DAY 1 ?REPEATED AT 3-WEEK INTERVALS

REACTIONS (1)
  - Lung infection [Unknown]
